FAERS Safety Report 10430439 (Version 1)
Quarter: 2014Q3

REPORT INFORMATION
  Report Type: Spontaneous
  Country: AL (occurrence: AL)
  Receive Date: 20140904
  Receipt Date: 20140904
  Transmission Date: 20150326
  Serious: Yes (Death, Hospitalization)
  Sender: FDA-Public Use
  Company Number: AL-MYLAN-2014M1003217

PATIENT

DRUGS (2)
  1. BISOPROLOL [Concomitant]
     Active Substance: BISOPROLOL
     Dosage: 6.5MG/DAY
     Route: 065
  2. METFORMIN [Suspect]
     Active Substance: METFORMIN HYDROCHLORIDE
     Indication: TYPE 2 DIABETES MELLITUS
     Dosage: 3G/DAY
     Route: 065

REACTIONS (11)
  - Anuria [None]
  - Lactic acidosis [Fatal]
  - Blood pressure fluctuation [None]
  - Coma [None]
  - Cardiac failure [None]
  - Vomiting [None]
  - Multi-organ failure [Fatal]
  - Overdose [Not Recovered/Not Resolved]
  - General physical health deterioration [None]
  - Circulatory collapse [None]
  - Blindness [None]
